FAERS Safety Report 13660537 (Version 2)
Quarter: 2017Q2

REPORT INFORMATION
  Report Type: Spontaneous
  Country: PY (occurrence: PY)
  Receive Date: 20170616
  Receipt Date: 20170622
  Transmission Date: 20170830
  Serious: Yes (Hospitalization, Other)
  Sender: FDA-Public Use
  Company Number: PY-BAYER-2017-110271

PATIENT
  Sex: Male
  Weight: 3.4 kg

DRUGS (1)
  1. QLAIRA [Suspect]
     Active Substance: DIENOGEST\ESTRADIOL VALERATE
     Dosage: 1 DF, QD
     Route: 064

REACTIONS (3)
  - Premature baby [None]
  - Foetal exposure timing unspecified [None]
  - Foetal disorder [None]
